FAERS Safety Report 4835993-1 (Version None)
Quarter: 2005Q4

REPORT INFORMATION
  Report Type: 
  Country: None (occurrence: None)
  Receive Date: 20051123
  Receipt Date: 20050923
  Transmission Date: 20060501
  Serious: Yes (Death)
  Sender: FDA-Public Use
  Company Number: US-ABBOTT-05P-163-0311771-00

PATIENT
  Sex: Female
  Weight: 100.5 kg

DRUGS (1)
  1. K-TAB [Suspect]
     Indication: DIURETIC EFFECT

REACTIONS (2)
  - ARTERIOSCLEROSIS [None]
  - DIABETES MELLITUS INSULIN-DEPENDENT [None]
